FAERS Safety Report 8839403 (Version 1)
Quarter: 2012Q4

REPORT INFORMATION
  Report Type: Spontaneous
  Country: US (occurrence: None)
  Receive Date: 20121011
  Receipt Date: 20121011
  Transmission Date: 20130627
  Serious: Yes (Other)
  Sender: FDA-Public Use
  Company Number: None

PATIENT
  Age: 81 Year
  Sex: Female

DRUGS (1)
  1. LIPODOX [Suspect]
     Route: 041
     Dates: start: 20120907, end: 20120907

REACTIONS (2)
  - Urticaria [None]
  - Pruritus [None]
